FAERS Safety Report 4588768-5 (Version None)
Quarter: 2005Q1

REPORT INFORMATION
  Report Type: 
  Country: None (occurrence: None)
  Receive Date: 20050216
  Receipt Date: 20050131
  Transmission Date: 20050727
  Serious: Yes (Hospitalization)
  Sender: FDA-Public Use
  Company Number: USA041080610

PATIENT
  Age: 82 Year
  Sex: Male

DRUGS (4)
  1. ALIMTA [Suspect]
     Indication: MESOTHELIOMA
     Dates: start: 20030501
  2. DEXAMETHASONE [Concomitant]
  3. FOLIC ACID [Concomitant]
  4. VIAMIN B12 [Concomitant]

REACTIONS (9)
  - ANOREXIA [None]
  - ASTHENIA [None]
  - CORONARY ARTERY OCCLUSION [None]
  - FATIGUE [None]
  - FEELING ABNORMAL [None]
  - INFLUENZA [None]
  - LACRIMATION INCREASED [None]
  - MYOCARDIAL INFARCTION [None]
  - RHINORRHOEA [None]
